FAERS Safety Report 7111035-2 (Version None)
Quarter: 2010Q4

REPORT INFORMATION
  Report Type: 
  Country: None (occurrence: None)
  Receive Date: 20101112
  Receipt Date: 20101101
  Transmission Date: 20110411
  Serious: Yes (Other)
  Sender: FDA-Public Use
  Company Number: 1000017149

PATIENT
  Age: 65 Year
  Sex: Female

DRUGS (5)
  1. DILTIAZEM HCL [Suspect]
     Indication: HYPERTENSION
  2. LEVOTHYROXINE SODIUM (LEVOTHYROXINE SODIUM) (LEVOTHYROXINE SODIUM) [Concomitant]
  3. ESTRADIOL [Concomitant]
  4. BUSPIRONE (BUSPIRONE) (BUSPIRONE) [Concomitant]
  5. PREDNISONE (PREDNISONE) (PREDNISONE) [Concomitant]

REACTIONS (2)
  - ACUTE GENERALISED EXANTHEMATOUS PUSTULOSIS [None]
  - BLOOD CALCIUM DECREASED [None]
